FAERS Safety Report 6067566-X (Version None)
Quarter: 2009Q1

REPORT INFORMATION
  Report Type: 
  Country: None (occurrence: None)
  Receive Date: 20090202
  Receipt Date: 20090121
  Transmission Date: 20090719
  Serious: Yes (Other)
  Sender: FDA-Public Use
  Company Number: SPV1-2009-00106

PATIENT
  Age: 10 Year
  Sex: Male
  Weight: 30.4 kg

DRUGS (1)
  1. ADDERALL XR(AMPHETAMINE ASPARTATE, AMPHETAMINE SULFATE, DEXTROAMPHETAM [Suspect]
     Indication: ATTENTION DEFICIT/HYPERACTIVITY DISORDER
     Dosage: ORAL
     Route: 048
     Dates: start: 20030101, end: 20070601

REACTIONS (6)
  - AGGRESSION [None]
  - AGITATION [None]
  - BLINDNESS [None]
  - EYE PROSTHESIS USER [None]
  - RETINAL DETACHMENT [None]
  - STICKLER'S SYNDROME [None]
